FAERS Safety Report 7954375-7 (Version None)
Quarter: 2011Q4

REPORT INFORMATION
  Report Type: 
  Country: None (occurrence: None)
  Receive Date: 20111202
  Receipt Date: 20111202
  Transmission Date: 20120403
  Serious: Yes (Hospitalization, Other)
  Sender: FDA-Public Use
  Company Number: US-PFIZER INC-2011100334

PATIENT
  Sex: Male
  Weight: 85 kg

DRUGS (14)
  1. EPLERENONE [Suspect]
     Indication: CARDIAC FAILURE CONGESTIVE
     Dosage: 25 MG, 1X/DAY
     Route: 048
     Dates: start: 20100916
  2. METHYLPREDNISOLONE ACETATE [Concomitant]
  3. COREG [Concomitant]
     Dosage: UNK
     Route: 048
     Dates: start: 19980201
  4. ONGLYZA [Concomitant]
     Dosage: UNK
     Route: 048
     Dates: start: 20101201, end: 20110427
  5. PROCRIT [Concomitant]
     Dosage: UNK
     Route: 048
     Dates: start: 20090804
  6. WARFARIN [Concomitant]
     Dosage: UNK
     Route: 048
     Dates: start: 19980314
  7. LISINOPRIL [Concomitant]
     Dosage: UNK
     Route: 048
     Dates: start: 19980201, end: 20110427
  8. NITROGLYCERIN [Concomitant]
     Dosage: UNK
     Route: 048
     Dates: start: 19980201
  9. DIGOXIN [Suspect]
     Indication: CARDIAC FAILURE CONGESTIVE
     Dosage: 125 UG, 1X/DAY
     Route: 048
     Dates: start: 20090130, end: 20110427
  10. LIPITOR [Concomitant]
     Dosage: UNK
     Route: 048
     Dates: start: 19980201
  11. LASIX [Concomitant]
     Dosage: UNK
     Route: 048
     Dates: start: 20090601, end: 20110427
  12. STARLIX [Concomitant]
     Dosage: UNK
     Route: 048
     Dates: start: 19980201, end: 20110427
  13. METFORMIN [Concomitant]
     Dosage: UNK
     Route: 048
     Dates: start: 19980201, end: 20110427
  14. INDOMETHACIN [Concomitant]
     Dosage: UNK
     Route: 048
     Dates: start: 20100329, end: 20110427

REACTIONS (4)
  - TOXICITY TO VARIOUS AGENTS [None]
  - RENAL FAILURE ACUTE [None]
  - MENTAL STATUS CHANGES [None]
  - BRADYCARDIA [None]
